FAERS Safety Report 6244171-3 (Version None)
Quarter: 2009Q2

REPORT INFORMATION
  Report Type: 
  Country: None (occurrence: None)
  Receive Date: 20090625
  Receipt Date: 20090616
  Transmission Date: 20091009
  Serious: Yes (Hospitalization)
  Sender: FDA-Public Use
  Company Number: US-BIOGENIDEC-2007BI023402

PATIENT
  Age: 60 Year
  Sex: Female

DRUGS (3)
  1. AVONEX [Suspect]
     Indication: MULTIPLE SCLEROSIS
     Route: 030
     Dates: start: 20030801, end: 20050801
  2. AVONEX [Suspect]
     Route: 030
     Dates: start: 20051101
  3. AVONEX [Suspect]
     Route: 030
     Dates: start: 20011201, end: 20030801

REACTIONS (4)
  - CEREBROVASCULAR ACCIDENT [None]
  - COORDINATION ABNORMAL [None]
  - FALL [None]
  - MOBILITY DECREASED [None]
